FAERS Safety Report 8831995 (Version 1)
Quarter: 2012Q4

REPORT INFORMATION
  Report Type: Report from Study
  Country: FR (occurrence: FR)
  Receive Date: 20121009
  Receipt Date: 20121009
  Transmission Date: 20130627
  Serious: Yes (Hospitalization)
  Sender: FDA-Public Use
  Company Number: FR-ROCHE-1068046

PATIENT
  Age: 64 Year
  Sex: Female
  Weight: 105 kg

DRUGS (8)
  1. MIRCERA [Suspect]
     Indication: NEPHROGENIC ANAEMIA
     Route: 058
     Dates: start: 20120402
  2. NEBIVOLOL [Suspect]
     Indication: NEPHROGENIC ANAEMIA
     Route: 065
     Dates: start: 20110930
  3. CYCLOSPORINE [Suspect]
     Indication: NEPHROGENIC ANAEMIA
     Route: 048
     Dates: start: 20110915
  4. CELLCEPT [Suspect]
     Indication: NEPHROGENIC ANAEMIA
     Route: 048
     Dates: start: 20110701
  5. SULFAMETHOXAZOLE/TRIMETHOPRIM [Suspect]
     Indication: NEPHROGENIC ANAEMIA
     Route: 048
     Dates: start: 20111106
  6. CALCIUM FOLINATE [Suspect]
     Indication: NEPHROGENIC ANAEMIA
     Route: 048
     Dates: start: 20120412
  7. ESOMEPRAZOLE [Suspect]
     Indication: NEPHROGENIC ANAEMIA
     Route: 048
     Dates: start: 20120430
  8. LERCANIDIPINE [Suspect]
     Indication: NEPHROGENIC ANAEMIA

REACTIONS (3)
  - Bronchial obstruction [Recovered/Resolved]
  - Bronchitis [Recovered/Resolved]
  - Lung disorder [Recovered/Resolved]
